FAERS Safety Report 22362296 (Version 4)
Quarter: 2024Q1

REPORT INFORMATION
  Report Type: Spontaneous
  Country: US (occurrence: US)
  Receive Date: 20230524
  Receipt Date: 20240125
  Transmission Date: 20240410
  Serious: Yes (Other)
  Sender: FDA-Public Use
  Company Number: US-PFIZER INC-202300199121

PATIENT
  Age: 72 Year
  Sex: Female
  Weight: 122.02 kg

DRUGS (3)
  1. PREMARIN [Suspect]
     Active Substance: ESTROGENS, CONJUGATED
     Indication: Hormone replacement therapy
     Dosage: UNK
  2. PREMARIN [Suspect]
     Active Substance: ESTROGENS, CONJUGATED
     Indication: Hormone replacement therapy
     Dosage: 0.3 MG, DAILY
     Dates: start: 202305
  3. PRAVASTATIN [Concomitant]
     Active Substance: PRAVASTATIN
     Indication: Prophylaxis
     Dosage: 10 MG, ALTERNATE DAY

REACTIONS (5)
  - Hypothyroidism [Unknown]
  - Blood chloride increased [Unknown]
  - Fibromyalgia [Unknown]
  - Anxiety [Unknown]
  - Heart rate increased [Unknown]
